FAERS Safety Report 10424972 (Version 8)
Quarter: 2024Q2

REPORT INFORMATION
  Report Type: Report from Study
  Country: DE (occurrence: DE)
  Receive Date: 20140902
  Receipt Date: 20240625
  Transmission Date: 20240716
  Serious: Yes (Hospitalization, Other)
  Sender: FDA-Public Use
  Company Number: DE-JNJFOC-20140824893

PATIENT
  Age: 15 Year
  Sex: Female
  Weight: 48.5 kg

DRUGS (5)
  1. REMICADE [Suspect]
     Active Substance: INFLIXIMAB
     Indication: Crohn^s disease
     Route: 041
     Dates: start: 20100331
  2. REMICADE [Suspect]
     Active Substance: INFLIXIMAB
     Route: 041
     Dates: start: 20100331, end: 20100415
  3. REMICADE [Suspect]
     Active Substance: INFLIXIMAB
     Route: 041
     Dates: start: 20100927, end: 20121001
  4. REMICADE [Suspect]
     Active Substance: INFLIXIMAB
     Route: 041
     Dates: start: 20121112, end: 20121112
  5. HUMIRA [Concomitant]
     Active Substance: ADALIMUMAB
     Route: 065
     Dates: start: 20121204

REACTIONS (8)
  - Crohn^s disease [Recovered/Resolved with Sequelae]
  - Stoma site inflammation [Recovered/Resolved]
  - Haematochezia [Recovered/Resolved]
  - Oral candidiasis [Recovered/Resolved]
  - Chronic gastritis [Recovered/Resolved]
  - Dermatitis [Recovered/Resolved]
  - Iron deficiency [Recovered/Resolved]
  - Oral candidiasis [Recovered/Resolved]

NARRATIVE: CASE EVENT DATE: 20140523
